FAERS Safety Report 16097064 (Version 1)
Quarter: 2019Q1

REPORT INFORMATION
  Report Type: Spontaneous
  Country: US (occurrence: US)
  Receive Date: 20190320
  Receipt Date: 20190320
  Transmission Date: 20190418
  Serious: No
  Sender: FDA-Public Use
  Company Number: US-BAUSCH-BL-2019-008349

PATIENT
  Age: 81 Year
  Sex: Male

DRUGS (1)
  1. BEPREVE [Suspect]
     Active Substance: BEPOTASTINE BESILATE
     Indication: HYPERSENSITIVITY
     Dosage: DURING THE WEEK OF 25/FEB/2019
     Route: 047
     Dates: start: 2019

REACTIONS (3)
  - Cough [Recovered/Resolved]
  - Incorrect route of product administration [Unknown]
  - Haemoptysis [Recovered/Resolved]

NARRATIVE: CASE EVENT DATE: 201903
